FAERS Safety Report 24326317 (Version 1)
Quarter: 2024Q3

REPORT INFORMATION
  Report Type: Spontaneous
  Country: JP (occurrence: JP)
  Receive Date: 20240917
  Receipt Date: 20240917
  Transmission Date: 20241016
  Serious: Yes (Hospitalization)
  Sender: GILEAD
  Company Number: JP-GILEAD-2024-0687448

PATIENT
  Age: 74 Year
  Sex: Female
  Weight: 45.2 kg

DRUGS (14)
  1. VEKLURY [Suspect]
     Active Substance: REMDESIVIR
     Indication: COVID-19
     Dosage: 200 MG, QD
     Route: 041
     Dates: start: 20240823, end: 20240823
  2. VEKLURY [Suspect]
     Active Substance: REMDESIVIR
     Dosage: 100 MG, QD
     Route: 041
     Dates: start: 20240824, end: 20240824
  3. METHOTREXATE [Concomitant]
     Active Substance: METHOTREXATE
  4. FOLIAMIN NICHIYAKU [Concomitant]
  5. AMLODIPINE [Concomitant]
     Active Substance: AMLODIPINE BESYLATE
  6. LANSOPRAZOLE [Concomitant]
     Active Substance: LANSOPRAZOLE
  7. PREGABALIN [Concomitant]
     Active Substance: PREGABALIN
  8. DISTIGMINE BROMIDE [Concomitant]
     Active Substance: DISTIGMINE BROMIDE
  9. MAGNESIUM OXIDE [Concomitant]
     Active Substance: MAGNESIUM OXIDE
  10. LIMAPROST [Concomitant]
     Active Substance: LIMAPROST
  11. ACETAMINOPHEN [Concomitant]
     Active Substance: ACETAMINOPHEN
  12. TIZANIDINE [Concomitant]
     Active Substance: TIZANIDINE
  13. METHYLCOBALAMIN [Concomitant]
     Active Substance: METHYLCOBALAMIN
  14. URAPIDIL [Concomitant]
     Active Substance: URAPIDIL

REACTIONS (1)
  - Hypotension [Recovered/Resolved]

NARRATIVE: CASE EVENT DATE: 20240823
